FAERS Safety Report 8735466 (Version 3)
Quarter: 2012Q4

REPORT INFORMATION
  Report Type: Report from Study
  Country: US (occurrence: US)
  Receive Date: 20120822
  Receipt Date: 20120914
  Transmission Date: 20130627
  Serious: Yes (Hospitalization, Other)
  Sender: FDA-Public Use
  Company Number: US-BRISTOL-MYERS SQUIBB COMPANY-16849754

PATIENT
  Age: 62 Year
  Sex: Female

DRUGS (27)
  1. CARBOPLATIN [Suspect]
     Indication: NEOPLASM
     Dosage: 1DF: 4AUC on Day 1 of each 21 day cycle
     Route: 042
     Dates: start: 20120321
  2. GEMCITABINE [Suspect]
     Indication: NEOPLASM
     Dosage: 12Jun12 end of cycle 4, day 1 and 8 of each 21 day cycle
     Route: 042
     Dates: start: 20120411
  3. ALPRAZOLAM [Concomitant]
     Indication: PREMEDICATION
     Dates: start: 20111011
  4. LEVOTHYROXINE [Concomitant]
     Indication: HYPOTHYROIDISM
     Dates: start: 2011
  5. OMEGA 3 FATTY ACID [Concomitant]
     Indication: NUTRITIONAL SUPPORT
     Dosage: 1DF:1tab
     Dates: start: 20120215
  6. OMEPRAZOLE [Concomitant]
     Indication: GASTROOESOPHAGEAL REFLUX DISEASE
     Dates: start: 20111019
  7. ERGOCALCIFEROL [Concomitant]
     Indication: NUTRITIONAL SUPPORT
     Dates: start: 20111019
  8. ONDANSETRON [Concomitant]
     Indication: PREMEDICATION
     Dosage: 21Mar12-Ongoin:16mg, 23May12:16mg, 13Jun12:25mg, 5Jun-6jun12:4mg, 6Jul12:16mg
     Dates: start: 20120321
  9. DEXAMETHASONE [Concomitant]
     Indication: PREMEDICATION
     Dosage: 21Mar-ongoin: 4mg, 02May12: 20mg, 12Jun-13Jun12:30mg, 6Jul:30mg
     Dates: start: 20120321
  10. HEPARIN [Concomitant]
     Indication: INTRAVENOUS CATHETER MANAGEMENT
     Dosage: 1DF:500Units NOS
     Dates: start: 20120321
  11. PEGFILGRASTIM [Concomitant]
     Indication: PROPHYLAXIS
     Dosage: 28Mar12, 18Apr12, 10May12, 30May12
     Dates: start: 20120328
  12. PEGFILGRASTIM [Concomitant]
     Indication: NEUTROPHIL COUNT DECREASED
     Dosage: 28Mar12, 18Apr12, 10May12, 30May12
     Dates: start: 20120328
  13. DOCUSATE SODIUM [Concomitant]
     Indication: CONSTIPATION
     Dosage: 1DF:1Tab
     Dates: start: 20120323
  14. BENADRYL [Concomitant]
     Indication: PREMEDICATION
     Dosage: 1DF: 11apr12-50mg, 02may12-25mg, 23May12,13Jun2012:50mg.06Jul12-25mg,06Jul12-50mg(4 hrs as needed).
     Dates: start: 20120411
  15. HYDROCORTISONE [Concomitant]
     Dosage: Once, 13Jun2012
     Dates: start: 20120705
  16. PROCHLORPERAZINE EDISYLATE [Concomitant]
     Indication: NAUSEA
     Dates: start: 20120705, end: 20120706
  17. PROCHLORPERAZINE EDISYLATE [Concomitant]
     Indication: VOMITING
     Dates: start: 20120705, end: 20120706
  18. HYDROCORTISONE SODIUM SUCCINATE [Concomitant]
     Dosage: once
     Dates: start: 20120613, end: 20120613
  19. LORAZEPAM [Concomitant]
     Indication: PREMEDICATION
     Dosage: 1mg once:23May12 to 23May12, 12Jun12 to 12JUn12.
4mg(1 mg as 4 times per/day):05JUl12 to 06Jul12.
     Dates: start: 20120523, end: 20120523
  20. PARACETAMOL [Concomitant]
     Indication: HEADACHE
     Dosage: Once,02May12 to 02May12,12Jun12 to 12Jun12.
     Dates: start: 20120612, end: 20120612
  21. PARACETAMOL [Concomitant]
     Indication: PREMEDICATION
     Dosage: Once,02May12 to 02May12,12Jun12 to 12Jun12.
     Dates: start: 20120612, end: 20120612
  22. PEPCID [Concomitant]
     Indication: PREMEDICATION
     Dosage: 20 mg once:02May12 to 02May12,23May12 to 23May12,13Jun12 to 13Jun12,
16mg once:06Jul12 to 06Jul12.
     Dates: start: 20120502, end: 20120502
  23. APREPITANT [Concomitant]
     Indication: PREMEDICATION
     Dosage: 125mgonce:02My12to02My12,23My12to23 my12,13Jun12to13Jun12,6Jul12to6Jul12,
80mg(1/day):3My12to3My12
     Dates: start: 20120502, end: 20120502
  24. APREPITANT [Concomitant]
     Indication: PROPHYLAXIS
     Dosage: 125mgonce:02My12to02My12,23My12to23 my12,13Jun12to13Jun12,6Jul12to6Jul12,
80mg(1/day):3My12to3My12
     Dates: start: 20120502, end: 20120502
  25. ESOMEPRAZOLE [Concomitant]
     Dosage: 20mg once:01May2012 to 1may2012, 23May12 to 23May12,
40 mg(1/day):06Jul12 to 06Jul12
     Dates: start: 20120501, end: 20120501
  26. SODIUM CHLORIDE [Concomitant]
     Dosage: 1000 ml inf once: 02May12 to 02May12,23may12 to 23 May12,22May12 to 22May12
     Dates: start: 20120502, end: 20120502
  27. MULTIVITAMIN [Concomitant]
     Indication: NUTRITIONAL SUPPORT
     Dosage: 1 dosageform = 1 tab
     Route: 048
     Dates: start: 20120215

REACTIONS (1)
  - Appendicitis [Recovered/Resolved]
